FAERS Safety Report 17240581 (Version 1)
Quarter: 2019Q4

REPORT INFORMATION
  Report Type: Spontaneous
  Country: US (occurrence: US)
  Receive Date: 20191212
  Receipt Date: 20191212
  Transmission Date: 20200122
  Serious: No
  Sender: FDA-Public Use
  Company Number: None

PATIENT
  Sex: Female

DRUGS (2)
  1. IBRANCE [Suspect]
     Active Substance: PALBOCICLIB
     Indication: BONE CANCER
     Route: 048
     Dates: start: 20191211
  2. IBRANCE [Suspect]
     Active Substance: PALBOCICLIB
     Indication: METASTASIS
     Route: 048
     Dates: start: 20191211

REACTIONS (1)
  - Peripheral swelling [None]
